FAERS Safety Report 8185459 (Version 2)
Quarter: 2012Q4

REPORT INFORMATION
  Report Type: 
  Country: US (occurrence: US)
  Receive Date: 20111018
  Receipt Date: 20121106
  Transmission Date: 20130627
  Serious: No
  Sender: FDA-Public Use
  Company Number: US-ASTRAZENECA-2009SE33217

PATIENT
  Age: 57 Year
  Sex: Female

DRUGS (4)
  1. SYMBICORT PMDI [Suspect]
     Dosage: 160/4.5 MCG, 2 PUFFS BID
     Route: 055
  2. NEXIUM [Suspect]
     Route: 048
  3. PRILOSEC OTC [Suspect]
     Route: 048
  4. BLOOD PRESSURE MEDICATION [Concomitant]
     Indication: HYPERTENSION

REACTIONS (10)
  - Rib fracture [Unknown]
  - Hand fracture [Unknown]
  - Fall [Unknown]
  - Hiatus hernia [Unknown]
  - Irritable bowel syndrome [Unknown]
  - Gastric disorder [Unknown]
  - Gait disturbance [Unknown]
  - Malaise [Unknown]
  - Frequent bowel movements [Unknown]
  - Drug ineffective [Unknown]
